FAERS Safety Report 8349659-7 (Version None)
Quarter: 2012Q2

REPORT INFORMATION
  Report Type: 
  Country: None (occurrence: None)
  Receive Date: 20120510
  Receipt Date: 20120507
  Transmission Date: 20120825
  Serious: Yes (Hospitalization)
  Sender: FDA-Public Use
  Company Number: PHHO2012KR007012

PATIENT
  Sex: Female
  Weight: 45.45 kg

DRUGS (7)
  1. BLINDED NO TREATMENT RECEIVED [Suspect]
     Indication: MULTIPLE MYELOMA
     Dosage: CODE NOT BROKEN
     Route: 048
     Dates: start: 20111028, end: 20120503
  2. COMPARATOR BORTEZOMIB [Suspect]
     Indication: MULTIPLE MYELOMA
     Dosage: 1.3 MG/M2, UNK
     Dates: start: 20111028, end: 20120427
  3. COMPARATOR DEXAMETHASONE [Suspect]
     Indication: MULTIPLE MYELOMA
     Dosage: 20 MG, UNK
     Route: 048
     Dates: start: 20111028, end: 20120428
  4. BLINDED FORTECORTIN [Suspect]
     Indication: MULTIPLE MYELOMA
     Dosage: CODE NOT BROKEN
     Route: 048
     Dates: start: 20111028, end: 20120503
  5. BLINDED LBH589 [Suspect]
     Indication: MULTIPLE MYELOMA
     Dosage: CODE NOT BROKEN
     Route: 048
     Dates: start: 20111028, end: 20120503
  6. PLACEBO [Suspect]
     Indication: MULTIPLE MYELOMA
     Dosage: CODE NOT BROKEN
     Route: 048
     Dates: start: 20111028, end: 20120503
  7. VELCADE [Suspect]
     Indication: MULTIPLE MYELOMA
     Dosage: CODE NOT BROKEN
     Route: 048
     Dates: start: 20111028, end: 20120503

REACTIONS (1)
  - PNEUMONIA [None]
